FAERS Safety Report 25483158 (Version 1)
Quarter: 2025Q2

REPORT INFORMATION
  Report Type: Spontaneous
  Country: US (occurrence: US)
  Receive Date: 20250626
  Receipt Date: 20250626
  Transmission Date: 20250716
  Serious: No
  Sender: Day One Biopharmaceuticals
  Company Number: US-Day One Biopharmaceuticals Inc.-2025US000868

PATIENT

DRUGS (1)
  1. OJEMDA [Suspect]
     Active Substance: TOVORAFENIB
     Indication: Glioma
     Route: 065
     Dates: start: 202501, end: 202503

REACTIONS (4)
  - Amenorrhoea [Unknown]
  - Blood prolactin increased [Unknown]
  - Dermatitis acneiform [Unknown]
  - Haemoglobin decreased [Unknown]
